FAERS Safety Report 10465048 (Version 1)
Quarter: 2014Q3

REPORT INFORMATION
  Report Type: Spontaneous
  Country: US (occurrence: US)
  Receive Date: 20140919
  Receipt Date: 20140919
  Transmission Date: 20150326
  Serious: No
  Sender: FDA-Public Use
  Company Number: US-BAUSCH-SYM-2014-22077

PATIENT
  Sex: Female

DRUGS (2)
  1. NU-DERM BLENDER (HYDROQUINONE) [Suspect]
     Active Substance: HYDROQUINONE
     Indication: APPLICATION SITE DISCOLOURATION
     Route: 061
  2. TRETINOIN. [Suspect]
     Active Substance: TRETINOIN
     Indication: SKIN HYPERPIGMENTATION
     Dosage: APPLY TOPICALLY TO FACE NIGHTLY
     Route: 061

REACTIONS (2)
  - Skin exfoliation [Recovering/Resolving]
  - Application site irritation [Recovering/Resolving]
